FAERS Safety Report 6404992-0 (Version None)
Quarter: 2009Q4

REPORT INFORMATION
  Report Type: 
  Country: None (occurrence: None)
  Receive Date: 20091019
  Receipt Date: 20091015
  Transmission Date: 20100525
  Serious: Yes (Death, Life-Threatening, Hospitalization)
  Sender: FDA-Public Use
  Company Number: HK-BAYER-200929236GPV

PATIENT
  Age: 58 Year
  Sex: Male
  Weight: 91 kg

DRUGS (14)
  1. NEXAVAR [Suspect]
     Indication: HEPATIC NEOPLASM MALIGNANT
     Dosage: TOTAL DAILY DOSE: 800 MG
     Route: 048
     Dates: start: 20090819, end: 20090820
  2. NAPROSYN [Suspect]
     Indication: DRUG USE FOR UNKNOWN INDICATION
     Route: 048
     Dates: start: 20090807
  3. ENTECAVIR [Concomitant]
     Indication: HEPATITIS B
     Route: 048
     Dates: start: 20090129
  4. NEXIUM [Concomitant]
     Route: 048
     Dates: start: 20090807
  5. NEXIUM [Concomitant]
     Route: 048
     Dates: start: 20090715, end: 20090804
  6. PHENSEDYL [Concomitant]
     Indication: COUGH
     Route: 048
     Dates: start: 20090730, end: 20090805
  7. ACETAMINOPHEN [Concomitant]
     Indication: PYREXIA
     Route: 048
     Dates: start: 20090730, end: 20090805
  8. GASTEEL [Concomitant]
     Route: 048
     Dates: start: 20090807
  9. ZINNAT [Concomitant]
     Indication: PYREXIA
     Route: 048
     Dates: start: 20090807, end: 20090813
  10. SENOKOT [Concomitant]
     Indication: CONSTIPATION
     Route: 048
     Dates: start: 20090812
  11. AMILORIDE HYDROCHLORIDE [Concomitant]
     Route: 048
     Dates: start: 20090812
  12. BUMEX [Concomitant]
     Route: 048
     Dates: start: 20090819
  13. OCTREOTIDE ACETATE [Concomitant]
     Dates: start: 20090822, end: 20090827
  14. ALBUMIN (HUMAN) [Concomitant]
     Dates: start: 20090923, end: 20090926

REACTIONS (3)
  - DUODENAL ULCER [None]
  - PYREXIA [None]
  - TUMOUR HAEMORRHAGE [None]
